APPROVED DRUG PRODUCT: NALIDIXIC ACID
Active Ingredient: NALIDIXIC ACID
Strength: 250MG
Dosage Form/Route: TABLET;ORAL
Application: A071936 | Product #001
Applicant: WATSON LABORATORIES INC
Approved: Jun 29, 1988 | RLD: No | RS: No | Type: DISCN